FAERS Safety Report 9698373 (Version 1)
Quarter: 2013Q4

REPORT INFORMATION
  Report Type: Spontaneous
  Country: FR (occurrence: FR)
  Receive Date: 20131120
  Receipt Date: 20131120
  Transmission Date: 20140711
  Serious: Yes (Hospitalization)
  Sender: FDA-Public Use
  Company Number: FR-TEVA-444947ISR

PATIENT
  Age: 89 Year
  Sex: Female

DRUGS (9)
  1. VOGALENE LYOC 7.5 MG LYOPHILISAT [Suspect]
     Dosage: 3 DOSAGE FORMS DAILY;
     Route: 048
     Dates: start: 20130928
  2. LOSARTAN [Suspect]
     Dosage: 50 MILLIGRAM DAILY;
     Route: 048
     Dates: end: 20131001
  3. BACTRIM FORTE, COMPRIM? [Suspect]
     Indication: URINARY TRACT INFECTION
     Dosage: 2 DOSAGE FORMS DAILY;
     Route: 048
     Dates: start: 20130923, end: 20131001
  4. DOLIPRANE 500 MG, G?LULE [Concomitant]
     Dosage: 6 DOSAGE FORMS DAILY;
     Route: 048
     Dates: start: 20130928
  5. EBIXA 10 MG, COMPRIM? PELLICUL? [Concomitant]
     Dosage: 2 DOSAGE FORMS DAILY;
     Route: 048
     Dates: end: 20131004
  6. REMINYL LP 24 MG, G?LULE ? LIB?RATION PROLONG?E [Concomitant]
     Route: 048
  7. LOXEN LP 50 MG, G?LULE ? LIB?RATION PROLONG?E [Concomitant]
     Dosage: 1 DOSAGE FORMS DAILY;
     Route: 048
     Dates: end: 20131001
  8. LOXEN LP 50 MG, G?LULE ? LIB?RATION PROLONG?E [Concomitant]
     Route: 048
     Dates: start: 20131008
  9. BASAL INSULIN [Concomitant]
     Dosage: 12 IU (INTERNATIONAL UNIT) DAILY;

REACTIONS (8)
  - Renal failure acute [Recovered/Resolved]
  - Hyperkalaemia [Recovered/Resolved]
  - Anuria [Recovered/Resolved]
  - Vomiting [Unknown]
  - Hyperthermia [Unknown]
  - Diarrhoea [Unknown]
  - Rash erythematous [Unknown]
  - Rash maculo-papular [Unknown]
